FAERS Safety Report 10645772 (Version 1)
Quarter: 2014Q4

REPORT INFORMATION
  Report Type: Spontaneous
  Country: PL (occurrence: PL)
  Receive Date: 20141211
  Receipt Date: 20141211
  Transmission Date: 20150529
  Serious: Yes (Death)
  Sender: FDA-Public Use
  Company Number: PL-ACTELION-A-CH2014-109034

PATIENT
  Age: 59 Year
  Sex: Male

DRUGS (1)
  1. STAYVEER [Suspect]
     Active Substance: BOSENTAN\BOSENTAN MONOHYDRATE
     Indication: PULMONARY ARTERIAL HYPERTENSION
     Dosage: 125 MG, BID
     Route: 048
     Dates: start: 2014, end: 20141006

REACTIONS (1)
  - Death [Fatal]

NARRATIVE: CASE EVENT DATE: 20141006
